FAERS Safety Report 12873598 (Version 1)
Quarter: 2016Q4

REPORT INFORMATION
  Report Type: Spontaneous
  Country: US (occurrence: US)
  Receive Date: 20161021
  Receipt Date: 20161021
  Transmission Date: 20170207
  Serious: No
  Sender: FDA-Public Use
  Company Number: US-BAYER-2016-200623

PATIENT
  Age: 82 Year
  Sex: Female
  Weight: 92.97 kg

DRUGS (1)
  1. MIRALAX [Suspect]
     Active Substance: POLYETHYLENE GLYCOL 3350
     Indication: GASTROINTESTINAL DISORDER
     Dosage: 2 TEASPOONS, QD
     Route: 048
     Dates: start: 2012, end: 2016

REACTIONS (2)
  - Product use issue [None]
  - Poor quality drug administered [None]
